FAERS Safety Report 9233431 (Version 2)
Quarter: 2013Q2

REPORT INFORMATION
  Report Type: Spontaneous
  Country: IT (occurrence: IT)
  Receive Date: 20130416
  Receipt Date: 20130521
  Transmission Date: 20140414
  Serious: Yes (Hospitalization)
  Sender: FDA-Public Use
  Company Number: IT-PFIZER INC-2013118790

PATIENT
  Age: 83 Year
  Sex: Female
  Weight: 46 kg

DRUGS (5)
  1. MEDROL [Suspect]
     Indication: RHEUMATOID ARTHRITIS
     Dosage: 4 MG, 1X/DAY
     Route: 048
     Dates: start: 20110101, end: 20130317
  2. CUMADIN [Interacting]
     Indication: PROPHYLAXIS
     Dosage: 5 MG, AS NEEDED
     Route: 048
     Dates: start: 19970101, end: 20130317
  3. LASIX [Concomitant]
     Dosage: 25 MG, UNK
     Route: 048
  4. MINITRAN [Concomitant]
     Dosage: 5 MG/24H, UNK
     Route: 003
  5. SPIRIVA [Concomitant]
     Dosage: UNK
     Route: 065

REACTIONS (3)
  - Rectal haemorrhage [Recovering/Resolving]
  - Anaemia [Recovering/Resolving]
  - Drug interaction [Recovering/Resolving]
